FAERS Safety Report 4349314-4 (Version None)
Quarter: 2004Q2

REPORT INFORMATION
  Report Type: 
  Country: None (occurrence: None)
  Receive Date: 20040428
  Receipt Date: 20021002
  Transmission Date: 20050107
  Serious: Yes (Hospitalization)
  Sender: FDA-Public Use
  Company Number: US-BRISTOL-MYERS SQUIBB COMPANY-12062857

PATIENT
  Age: 45 Year
  Sex: Male

DRUGS (35)
  1. BMS224818 [Concomitant]
     Dosage: REALLOCATION DATE:  14-NOV-2002
     Route: 042
     Dates: start: 20020827
  2. BASILIXIMAB [Suspect]
     Dosage: -ADMINISTERED ON 27-AUG-2002 AND 31-AUG-2002
     Dates: start: 20020827
  3. SOLU-MEDROL [Suspect]
     Dosage: DOSAGE ON 27-AUG-2002: 500MG; DOSAGE ON 28-AUG-2002: 250MG; 29-AUG-2002:100MG
     Dates: start: 20020827, end: 20020829
  4. PREDNISONE [Suspect]
     Dosage: DOSAGE ON 30-AUG-2002: 50MG PER DAY; DOSAGE ON 31-AUG-2002 DECREASED TO 31MG PER DAY.
     Dates: start: 20020830
  5. MYCOPHENOLATE MOFETIL [Suspect]
     Dates: start: 20020827
  6. ADALAT [Concomitant]
     Indication: HYPERTENSION
     Dosage: -INCREASED TO 60 MILLIGRAMS PER DAY ON 31-AUG-2002.
     Dates: start: 20020827
  7. CEFAZOLIN [Concomitant]
     Indication: PROPHYLAXIS
     Dates: start: 20020827, end: 20020831
  8. CIPROFLOXACIN [Concomitant]
     Indication: PROPHYLAXIS
     Dates: start: 20020828, end: 20020831
  9. SEPTRA [Concomitant]
     Indication: INFECTION PROPHYLAXIS
     Dates: start: 20020829
  10. ACETAMINOPHEN + CODEINE [Concomitant]
     Indication: POST PROCEDURAL PAIN
     Dosage: -650-1300 MILLIGRAMS
     Dates: start: 20020904, end: 20020904
  11. DILAUDID [Concomitant]
     Indication: POST PROCEDURAL PAIN
     Dosage: -1-2 MILLIGRAMS
     Dates: start: 20020831, end: 20020903
  12. LACTULOSE [Concomitant]
     Indication: CONSTIPATION PROPHYLAXIS
     Dates: start: 20020829, end: 20020901
  13. CLONIDINE HCL [Concomitant]
     Indication: HYPERTENSION
     Dates: start: 20020903
  14. LABETALOL HCL [Concomitant]
     Indication: HYPERTENSION
     Dates: start: 20020901
  15. NITROGLYCERIN [Concomitant]
     Dates: start: 20020903
  16. MORPHINE [Concomitant]
     Indication: POST PROCEDURAL PAIN
     Dosage: -VARYING DOSES
     Dates: start: 20020827
  17. DOLASETRON [Concomitant]
     Indication: ANAESTHESIA
     Dosage: -DOSE RANGE 20-50 MILLIGRAMS
     Dates: start: 20020827, end: 20020830
  18. DOLASETRON [Concomitant]
     Indication: NAUSEA
     Dosage: -DOSE RANGE 20-50 MILLIGRAMS
     Dates: start: 20020827, end: 20020830
  19. MIDAZOLAM HCL [Concomitant]
     Indication: ANAESTHESIA
     Dates: start: 20020827, end: 20020827
  20. LIDOCAINE AND EPINEPHRINE [Concomitant]
     Indication: ANAESTHESIA
     Dates: start: 20020827, end: 20020827
  21. PROPOFOL [Concomitant]
     Indication: ANAESTHESIA
     Dates: start: 20020827, end: 20020827
  22. KETAMINE HCL [Concomitant]
     Indication: ANAESTHESIA
     Dates: start: 20020827, end: 20020827
  23. CISATRACURIUM BESILATE [Concomitant]
     Indication: ANAESTHESIA
     Dates: start: 20020827, end: 20020827
  24. ATROPINE [Concomitant]
     Indication: ANAESTHESIA
     Dates: start: 20020827, end: 20020827
  25. EDROPHONIUM CHLORIDE [Concomitant]
     Indication: ANAESTHESIA
     Dates: start: 20020827, end: 20020827
  26. RANITIDINE [Concomitant]
     Indication: PROPHYLAXIS
     Dates: start: 20020827, end: 20020831
  27. NOZINAN [Concomitant]
     Indication: POST PROCEDURAL PAIN
     Dates: start: 20020827, end: 20020827
  28. DIPHENHYDRAMINE HCL [Concomitant]
     Indication: PRURITUS
     Dosage: -DOSE RANGE 25-100 MILLIGRAMS
     Dates: start: 20020828, end: 20020829
  29. DOPAMINE HCL [Concomitant]
     Indication: HYPOTENSION
     Dates: start: 20020827, end: 20020827
  30. METOCLOPRAMIDE [Concomitant]
     Indication: NAUSEA
     Dosage: -DOSAGE RANGE FROM 10-30 MILLIGRAMS
     Dates: start: 20020827, end: 20020831
  31. FENTANYL [Concomitant]
     Indication: POST PROCEDURAL PAIN
     Dates: start: 20020827, end: 20020827
  32. DIMENHYDRINATE [Concomitant]
     Indication: NAUSEA
     Dates: start: 20020828, end: 20020831
  33. CALCIUM CARBONATE [Concomitant]
     Indication: OSTEOPOROSIS PROPHYLAXIS
     Dates: start: 20020829
  34. MULTI-VITAMIN [Concomitant]
     Indication: VITAMIN SUPPLEMENTATION
     Dates: start: 20020829
  35. OXYCODONE [Concomitant]
     Indication: POST PROCEDURAL PAIN
     Dates: start: 20020830, end: 20020831

REACTIONS (1)
  - KIDNEY TRANSPLANT REJECTION [None]
